FAERS Safety Report 17973999 (Version 1)
Quarter: 2020Q3

REPORT INFORMATION
  Report Type: Spontaneous
  Country: US (occurrence: US)
  Receive Date: 20200702
  Receipt Date: 20200702
  Transmission Date: 20201103
  Serious: Yes (Hospitalization)
  Sender: FDA-Public Use
  Company Number: None

PATIENT
  Age: 65 Year
  Sex: Male

DRUGS (1)
  1. RIVAROXABAN (RIVAROXABAN 20MG TAB ) [Suspect]
     Active Substance: RIVAROXABAN
     Indication: ATRIAL FIBRILLATION
     Dates: start: 20171016, end: 20200613

REACTIONS (2)
  - Pulmonary embolism [None]
  - Treatment failure [None]

NARRATIVE: CASE EVENT DATE: 20200613
